FAERS Safety Report 15618311 (Version 1)
Quarter: 2018Q4

REPORT INFORMATION
  Report Type: Spontaneous
  Country: US (occurrence: US)
  Receive Date: 20181114
  Receipt Date: 20181114
  Transmission Date: 20190205
  Serious: No
  Sender: FDA-Public Use
  Company Number: US-PFIZER INC-2018458624

PATIENT
  Age: 63 Year
  Sex: Female

DRUGS (1)
  1. LYRICA [Suspect]
     Active Substance: PREGABALIN
     Dosage: 300 MG, [75 MG, 1 CAPSULE IN THE MORNING, 1 CAPSULE AT NOON, AND 2 CAPSULES AT NIGHT BY MOUTH]
     Route: 048

REACTIONS (1)
  - Withdrawal syndrome [Recovering/Resolving]
